FAERS Safety Report 8261010-X (Version None)
Quarter: 2012Q2

REPORT INFORMATION
  Report Type: 
  Country: None (occurrence: None)
  Receive Date: 20120405
  Receipt Date: 20120329
  Transmission Date: 20120825
  Serious: Yes (Hospitalization, Other)
  Sender: FDA-Public Use
  Company Number: US-PFIZER INC-2010034401

PATIENT
  Sex: Male

DRUGS (23)
  1. DILANTIN-125 [Suspect]
     Dosage: 300MG ONCE DAILY
     Route: 048
  2. XANAX [Concomitant]
     Indication: ANXIETY
     Dosage: 2 MG, 3X/DAY (EVERY 8 HOURS)
     Route: 048
     Dates: start: 20090313
  3. DILAUDID [Concomitant]
     Dosage: 2 MG/ML, EVERY 4 HRS
     Route: 042
     Dates: start: 20090313
  4. PROVENTIL GENTLEHALER [Concomitant]
     Dosage: 90 MCG TWO PUFFS EVERY 4-6 HOURS
     Dates: start: 20090313
  5. DILANTIN [Suspect]
     Dosage: 500 MG, UNK
     Route: 042
  6. RISPERDAL [Concomitant]
     Dosage: 1 MG, 1X/DAY (EVERY EVENING)
     Route: 048
     Dates: start: 20090313
  7. ATIVAN [Concomitant]
     Dosage: 2 MG/ML, EVERY 4 HRS
     Route: 042
     Dates: start: 20090313
  8. ABILIFY [Concomitant]
     Indication: SELF-INJURIOUS IDEATION
     Dosage: 10 MG, 1X/DAY
     Route: 048
     Dates: start: 20090313
  9. ZOLOFT [Concomitant]
     Indication: DEPRESSION
     Dosage: 100 MG, 1X/DAY (EVERY EVENING)
     Route: 048
     Dates: start: 20090313
  10. THIAMINE [Concomitant]
     Dosage: 100 MG, 1X/DAY
     Route: 048
     Dates: start: 20090313
  11. NEURONTIN [Concomitant]
     Indication: MOOD SWINGS
     Dosage: 300 MG, 4X/DAY (EVERY SIX HOURS)
     Route: 048
     Dates: start: 20090313
  12. FOLIC ACID [Concomitant]
     Dosage: 1 MG, 1X/DAY
     Route: 048
     Dates: start: 20090313, end: 20090315
  13. REQUIP [Concomitant]
     Dosage: 2 MG, 1X/DAY (EVERY EVENING)
     Route: 048
     Dates: start: 20090313
  14. DILANTIN-125 [Suspect]
     Indication: CONVULSION
     Dosage: 100MG ORALLY EVERY EIGHT HOURLY
     Route: 048
  15. DILANTIN-125 [Suspect]
     Dosage: 100MG THREE ONCE A DAY
  16. DILANTIN [Suspect]
     Indication: CONVULSION
     Dosage: 50 MG, 1X/DAY
     Route: 048
     Dates: start: 20090313
  17. TYLENOL [Concomitant]
     Dosage: 650 MG, EVERY 4 HRS
     Route: 048
     Dates: start: 20090313
  18. ARICEPT [Concomitant]
     Dosage: 10 MG, 1X/DAY
     Route: 048
     Dates: start: 20090313
  19. GUAIFENESIN [Concomitant]
     Dosage: 200MG/10ML EVERY 4 HOURS
     Route: 048
     Dates: start: 20090313
  20. PROMETHAZINE [Concomitant]
     Dosage: 25 MG/ML, 4X/DAY (EVERY 6 HOURS)
     Route: 042
     Dates: start: 20090313
  21. TUBERSOL [Concomitant]
     Dosage: 0.1 ML, UNK
     Dates: start: 20090313, end: 20090316
  22. DILANTIN-125 [Suspect]
     Dosage: 350 MG, DAILY
  23. PHENYTOIN [Concomitant]
     Dosage: 100 MG, UNK
     Dates: start: 20090313

REACTIONS (1)
  - STEVENS-JOHNSON SYNDROME [None]
